FAERS Safety Report 17281532 (Version 1)
Quarter: 2020Q1

REPORT INFORMATION
  Report Type: Spontaneous
  Country: ES (occurrence: ES)
  Receive Date: 20200117
  Receipt Date: 20200117
  Transmission Date: 20200409
  Serious: Yes (Hospitalization)
  Sender: FDA-Public Use
  Company Number: ES-TEVA-2020-ES-1168030

PATIENT
  Age: 80 Year
  Sex: Female

DRUGS (4)
  1. ATORVASTATINA 10 MG COMPRIMIDO [Concomitant]
  2. ATROVENT [Concomitant]
     Active Substance: IPRATROPIUM BROMIDE
  3. METFORMINA [METFORMIN] [Suspect]
     Active Substance: METFORMIN HYDROCHLORIDE
     Indication: DIABETES MELLITUS
     Dosage: 850 MG PER 12 HOURS
     Route: 048
     Dates: start: 2018
  4. FUROSEMIDA 40 MG COMPRIMIDO [Concomitant]
     Active Substance: FUROSEMIDE

REACTIONS (3)
  - Diarrhoea [Recovered/Resolved]
  - Chronic kidney disease [Recovered/Resolved]
  - Hypokalaemia [Recovered/Resolved]

NARRATIVE: CASE EVENT DATE: 20190226
